FAERS Safety Report 12631861 (Version 2)
Quarter: 2016Q3

REPORT INFORMATION
  Report Type: Spontaneous
  Country: US (occurrence: US)
  Receive Date: 20160808
  Receipt Date: 20160808
  Transmission Date: 20161109
  Serious: No
  Sender: FDA-Public Use
  Company Number: US-BEH-2016061269

PATIENT
  Sex: Female
  Weight: 108 kg

DRUGS (51)
  1. CIPROFLOXACIN. [Concomitant]
     Active Substance: CIPROFLOXACIN
  2. FLOVENT [Concomitant]
     Active Substance: FLUTICASONE PROPIONATE
  3. XOPENEX [Concomitant]
     Active Substance: LEVALBUTEROL HYDROCHLORIDE
  4. VITAMIN D [Concomitant]
     Active Substance: CHOLECALCIFEROL
  5. DUONEB [Concomitant]
     Active Substance: ALBUTEROL SULFATE\IPRATROPIUM BROMIDE
  6. CENTRUM CARDIO [Concomitant]
     Active Substance: VITAMINS
  7. PROCTOFOAM HC [Concomitant]
     Active Substance: HYDROCORTISONE ACETATE\PRAMOXINE HYDROCHLORIDE
  8. NASONEX [Concomitant]
     Active Substance: MOMETASONE FUROATE
  9. FLUOXETINE [Concomitant]
     Active Substance: FLUOXETINE HYDROCHLORIDE
  10. ALDACTONE [Concomitant]
     Active Substance: SPIRONOLACTONE
  11. CLARITIN [Concomitant]
     Active Substance: LORATADINE
  12. ALBUTEROL. [Concomitant]
     Active Substance: ALBUTEROL
  13. CARAFATE [Concomitant]
     Active Substance: SUCRALFATE
  14. CALCIUM + VIT D [Concomitant]
     Active Substance: CALCIUM\VITAMIN D
  15. FLAGYL [Concomitant]
     Active Substance: METRONIDAZOLE\METRONIDAZOLE HYDROCHLORIDE
  16. PROMETHAZINE-CODEINE [Concomitant]
     Active Substance: CODEINE PHOSPHATE\PROMETHAZINE
  17. HUMALOG [Concomitant]
     Active Substance: INSULIN LISPRO
  18. GLIPIZIDE ER [Concomitant]
     Active Substance: GLIPIZIDE
  19. FLUCONAZOLE. [Concomitant]
     Active Substance: FLUCONAZOLE
  20. SINGULAIR [Concomitant]
     Active Substance: MONTELUKAST SODIUM
  21. HYDROCODONE-ACETAMINOPHEN [Concomitant]
     Active Substance: ACETAMINOPHEN\HYDROCODONE
  22. CLONIDINE. [Concomitant]
     Active Substance: CLONIDINE
  23. IRON [Concomitant]
     Active Substance: IRON
  24. NYSTATIN. [Concomitant]
     Active Substance: NYSTATIN
  25. COMBIVENT [Concomitant]
     Active Substance: ALBUTEROL SULFATE\IPRATROPIUM BROMIDE
  26. HIZENTRA [Suspect]
     Active Substance: HUMAN IMMUNOGLOBULIN G
     Indication: IMMUNODEFICIENCY COMMON VARIABLE
     Route: 058
  27. LIDOCAINE. [Concomitant]
     Active Substance: LIDOCAINE
  28. ZOLPIDEM [Concomitant]
     Active Substance: ZOLPIDEM\ZOLPIDEM TARTRATE
  29. IBUPROFEN. [Concomitant]
     Active Substance: IBUPROFEN
  30. EPIPEN [Concomitant]
     Active Substance: EPINEPHRINE
  31. TESSALON [Concomitant]
     Active Substance: BENZONATATE
  32. BOOST [Concomitant]
     Active Substance: DIETARY SUPPLEMENT
  33. LOSARTAN. [Concomitant]
     Active Substance: LOSARTAN
  34. ASPIRIN. [Concomitant]
     Active Substance: ASPIRIN
  35. SUPER B-50 COMPLEX PLUS [Concomitant]
  36. MAGNESIUM [Concomitant]
     Active Substance: MAGNESIUM
  37. NORVASC [Concomitant]
     Active Substance: AMLODIPINE BESYLATE
  38. MECLIZINE [Concomitant]
     Active Substance: MECLIZINE HYDROCHLORIDE
  39. HYDROCHLOROTHIAZIDE. [Concomitant]
     Active Substance: HYDROCHLOROTHIAZIDE
  40. PULMICORT TURBUHALER [Concomitant]
     Active Substance: BUDESONIDE
  41. AMOXICILLIN. [Concomitant]
     Active Substance: AMOXICILLIN
  42. OXYGEN. [Concomitant]
     Active Substance: OXYGEN
  43. FISH OIL [Concomitant]
     Active Substance: FISH OIL
  44. DIPHENHYDRAMINE. [Concomitant]
     Active Substance: DIPHENHYDRAMINE
  45. SILVADENE [Concomitant]
     Active Substance: SILVER SULFADIAZINE
  46. ESTER-C [Concomitant]
     Active Substance: CALCIUM\VITAMINS
  47. ULTRAM ER [Concomitant]
     Active Substance: TRAMADOL HYDROCHLORIDE
  48. TRIAZOLAM. [Concomitant]
     Active Substance: TRIAZOLAM
  49. LOPERAMIDE [Concomitant]
     Active Substance: LOPERAMIDE
  50. ATIVAN [Concomitant]
     Active Substance: LORAZEPAM
  51. XALATAN [Concomitant]
     Active Substance: LATANOPROST

REACTIONS (1)
  - Pancreatic disorder [Unknown]
